FAERS Safety Report 8996210 (Version 4)
Quarter: 2013Q1

REPORT INFORMATION
  Report Type: Spontaneous
  Country: JP (occurrence: JP)
  Receive Date: 20130103
  Receipt Date: 20130125
  Transmission Date: 20140127
  Serious: Yes (Hospitalization)
  Sender: FDA-Public Use
  Company Number: JP-B.I. PHARMACEUTICALS,INC./RIDGEFIELD-2012-BI-04057NB

PATIENT
  Age: 75 None
  Sex: Male

DRUGS (9)
  1. SIFROL [Suspect]
     Dosage: 1.5 MG
     Route: 048
     Dates: start: 20121208, end: 20121218
  2. MADOPAR [Concomitant]
     Route: 065
  3. GRAMALIL [Concomitant]
     Dosage: 25 MG
     Route: 065
  4. DOPS [Concomitant]
     Route: 065
  5. RISPERDAL [Concomitant]
     Route: 065
  6. TAKEPRON [Concomitant]
     Dosage: 15 MG
     Route: 065
  7. BAYASPIRIN [Concomitant]
     Dosage: 100 MG
     Route: 065
  8. ARICEPT [Concomitant]
     Dosage: 15 MG
     Route: 065
  9. SELARA [Concomitant]
     Route: 065

REACTIONS (2)
  - Altered state of consciousness [Not Recovered/Not Resolved]
  - Somnolence [Unknown]
